FAERS Safety Report 9267321 (Version 1)
Quarter: 2013Q2

REPORT INFORMATION
  Report Type: Spontaneous
  Country: FR (occurrence: FR)
  Receive Date: 20130502
  Receipt Date: 20130502
  Transmission Date: 20140414
  Serious: Yes (Other)
  Sender: FDA-Public Use
  Company Number: FR-GILEAD-2013-0074437

PATIENT
  Age: 49 Year
  Sex: Male

DRUGS (5)
  1. EMTRIVA [Suspect]
     Indication: HIV INFECTION
     Dosage: 200 MG, QD
     Route: 048
     Dates: start: 20130127
  2. REYATAZ [Suspect]
     Indication: HIV INFECTION
     Dosage: 300 MG, QD
     Route: 048
     Dates: start: 20130212, end: 20130218
  3. ISENTRESS [Suspect]
     Indication: HIV INFECTION
     Dosage: 400 MG, BID
     Dates: start: 20130127
  4. NORVIR [Concomitant]
     Dosage: UNK
     Dates: start: 20130127, end: 20130212
  5. PREZISTA [Concomitant]
     Dosage: UNK
     Dates: start: 20130127, end: 20130212

REACTIONS (1)
  - Nephrolithiasis [Recovered/Resolved]
